FAERS Safety Report 15264337 (Version 1)
Quarter: 2018Q3

REPORT INFORMATION
  Report Type: Spontaneous
  Country: US (occurrence: US)
  Receive Date: 20180723
  Receipt Date: 20180723
  Transmission Date: 20181010
  Serious: Yes (Hospitalization)
  Sender: FDA-Public Use
  Company Number: None

PATIENT
  Sex: Female
  Weight: 11.3 kg

DRUGS (6)
  1. CYTARABINE. [Suspect]
     Active Substance: CYTARABINE
     Dates: start: 20180720, end: 20180720
  2. VINCRISTINE SULFATE. [Suspect]
     Active Substance: VINCRISTINE SULFATE
  3. DEXAMETHASONE. [Suspect]
     Active Substance: DEXAMETHASONE
  4. METHOTREXATE. [Suspect]
     Active Substance: METHOTREXATE
  5. PEG?L?ASPARAGINASE [Suspect]
     Active Substance: PEGASPARGASE
  6. DAUNORUBICIN [Suspect]
     Active Substance: DAUNORUBICIN

REACTIONS (7)
  - Neutropenia [None]
  - Febrile neutropenia [None]
  - Cardiac arrest [None]
  - Peripheral coldness [None]
  - Grunting [None]
  - Blood lactic acid increased [None]
  - Escherichia infection [None]

NARRATIVE: CASE EVENT DATE: 20180720
